FAERS Safety Report 15954190 (Version 3)
Quarter: 2019Q4

REPORT INFORMATION
  Report Type: Spontaneous
  Country: CA (occurrence: CA)
  Receive Date: 20190212
  Receipt Date: 20191223
  Transmission Date: 20200122
  Serious: Yes (Other)
  Sender: FDA-Public Use
  Company Number: CA-009507513-1902CAN003242

PATIENT
  Age: 51 Year
  Sex: Female

DRUGS (18)
  1. ROSUVASTATIN. [Suspect]
     Active Substance: ROSUVASTATIN
     Indication: TYPE IIA HYPERLIPIDAEMIA
     Dosage: 1 EVERY 1 DAY
     Route: 065
  2. ROSUVASTATIN. [Suspect]
     Active Substance: ROSUVASTATIN
     Dosage: 1 EVERY 2 DAYS
     Route: 065
  3. EZETROL [Suspect]
     Active Substance: EZETIMIBE
     Indication: TYPE IIA HYPERLIPIDAEMIA
     Dosage: 10 MILLIGRAM
     Route: 065
  4. ROSUVASTATIN. [Suspect]
     Active Substance: ROSUVASTATIN
     Indication: XANTHOMA
     Dosage: 1 EVERY 2 WEEKS
     Route: 048
  5. ROSUVASTATIN. [Suspect]
     Active Substance: ROSUVASTATIN
     Dosage: 1 EVERY 2 DAYS
     Route: 048
  6. LODALIS [Suspect]
     Active Substance: COLESEVELAM HYDROCHLORIDE
     Indication: XANTHOMA
  7. REPATHA [Suspect]
     Active Substance: EVOLOCUMAB
     Indication: TYPE IIA HYPERLIPIDAEMIA
     Dosage: 140 MILLIGRAM SOLUTION SUBCUTANEOUS, 1 EVERY 2 WEEKS (SINGLE USE PREFILLED SYRINGE AND AUTOINJECTOR)
     Route: 058
  8. LODALIS [Suspect]
     Active Substance: COLESEVELAM HYDROCHLORIDE
     Indication: XANTHOMA
  9. PRAVASTATIN. [Suspect]
     Active Substance: PRAVASTATIN
     Indication: TYPE IIA HYPERLIPIDAEMIA
     Dosage: 10 MILLIGRAM
     Route: 065
  10. REPATHA [Suspect]
     Active Substance: EVOLOCUMAB
     Indication: XANTHOMA
  11. ATORVASTATIN CALCIUM. [Suspect]
     Active Substance: ATORVASTATIN CALCIUM
     Indication: TYPE IIA HYPERLIPIDAEMIA
     Route: 065
  12. LODALIS [Suspect]
     Active Substance: COLESEVELAM HYDROCHLORIDE
     Indication: TYPE IIA HYPERLIPIDAEMIA
     Dosage: FILM COATED TABLET
     Route: 065
  13. REPATHA [Suspect]
     Active Substance: EVOLOCUMAB
     Indication: TYPE IIA HYPERLIPIDAEMIA
     Dosage: SINGLE USE PREFILLED SYRINGE AND AUTOINJECTOR
     Route: 065
  14. EZETROL [Suspect]
     Active Substance: EZETIMIBE
     Indication: XANTHOMA
  15. PRAVASTATIN. [Suspect]
     Active Substance: PRAVASTATIN
     Indication: XANTHOMA
  16. ATORVASTATIN CALCIUM. [Suspect]
     Active Substance: ATORVASTATIN CALCIUM
     Indication: XANTHOMA
  17. REPATHA [Suspect]
     Active Substance: EVOLOCUMAB
     Indication: XANTHOMA
  18. LODALIS [Suspect]
     Active Substance: COLESEVELAM HYDROCHLORIDE
     Indication: TYPE IIA HYPERLIPIDAEMIA
     Dosage: POWDER FOR SUSPENSION ORAL
     Route: 065

REACTIONS (2)
  - Drug intolerance [Unknown]
  - Drug ineffective [Unknown]
